FAERS Safety Report 7777966-5 (Version None)
Quarter: 2011Q3

REPORT INFORMATION
  Report Type: 
  Country: None (occurrence: None)
  Receive Date: 20110926
  Receipt Date: 20110912
  Transmission Date: 20111222
  Serious: Yes (Other)
  Sender: FDA-Public Use
  Company Number: US-BIOGENIDEC-2011BI034984

PATIENT
  Age: 61 Year
  Sex: Female

DRUGS (2)
  1. AMPYRA [Concomitant]
     Indication: GAIT DISTURBANCE
     Dates: start: 20110820
  2. AVONEX [Suspect]
     Indication: MULTIPLE SCLEROSIS
     Route: 030
     Dates: start: 20110904, end: 20110904

REACTIONS (7)
  - DIZZINESS [None]
  - RASH [None]
  - DISORIENTATION [None]
  - CONVULSION [None]
  - MUSCLE SPASMS [None]
  - PAIN [None]
  - NAUSEA [None]
